FAERS Safety Report 5269034-1 (Version None)
Quarter: 2007Q1

REPORT INFORMATION
  Report Type: 
  Country: None (occurrence: None)
  Receive Date: 20070319
  Receipt Date: 20070305
  Transmission Date: 20070707
  Serious: Yes (Hospitalization)
  Sender: FDA-Public Use
  Company Number: BE-ELI_LILLY_AND_COMPANY-BE200612004483

PATIENT
  Age: 62 Year
  Sex: Male
  Weight: 75.5 kg

DRUGS (11)
  1. CYMBALTA [Suspect]
     Indication: DIABETIC NEUROPATHY
     Dosage: 60 MG, DAILY (1/D)
     Route: 048
     Dates: start: 20061225, end: 20061228
  2. RIVOTRIL                                /NOR/ [Concomitant]
  3. NOVOMIX [Concomitant]
     Indication: DIABETES MELLITUS
  4. CAMPRAL                                 /GFR/ [Concomitant]
     Indication: ALCOHOLISM
  5. PANTOZOL                                /GFR/ [Concomitant]
     Indication: PROPHYLAXIS
  6. METFORMAX [Concomitant]
     Indication: DIABETES MELLITUS
  7. MICARDIS [Concomitant]
     Indication: HYPERTENSION
  8. ALLOPURINOL [Concomitant]
  9. BENERVA [Concomitant]
  10. ASAFLOW [Concomitant]
  11. VALIUM [Concomitant]
     Dosage: 10 MG, 4/D

REACTIONS (6)
  - DIARRHOEA [None]
  - DRY MOUTH [None]
  - GAIT DISTURBANCE [None]
  - SPEECH DISORDER [None]
  - VISION BLURRED [None]
  - XEROPHTHALMIA [None]
